FAERS Safety Report 15203598 (Version 1)
Quarter: 2018Q3

REPORT INFORMATION
  Report Type: Spontaneous
  Country: US (occurrence: US)
  Receive Date: 20180726
  Receipt Date: 20180726
  Transmission Date: 20181010
  Serious: No
  Sender: FDA-Public Use
  Company Number: US-009507513-1512USA006750

PATIENT
  Age: 35 Year
  Sex: Female

DRUGS (8)
  1. RITONAVIR. [Suspect]
     Active Substance: RITONAVIR
     Dosage: TOTAL DAILY DOSE: 200 (UNIT NOT PROVIDED) COURSE# 1
     Route: 048
     Dates: start: 201411
  2. ISENTRESS [Suspect]
     Active Substance: RALTEGRAVIR POTASSIUM
     Dosage: TOTAL DAILY DOSE: 800 (UNIT NOT PROVIDED)TOTAL DAILY DOSE: 500 (UNIT NOT PROVIDED), COURSE# 1
     Route: 048
     Dates: start: 201501
  3. DARUNAVIR [Suspect]
     Active Substance: DARUNAVIR
     Dosage: TOTAL DAILY DOSE: 1200 (UNIT NOT PROVIDED), COURSE # 1
     Route: 048
     Dates: start: 201411, end: 201411
  4. DARUNAVIR [Suspect]
     Active Substance: DARUNAVIR
     Dosage: TOTAL DAILY DOSE: 1600 (UNIT NOT PROVIDED), COURSE# 2
     Route: 048
     Dates: start: 201411
  5. ZIDOVUDINE. [Suspect]
     Active Substance: ZIDOVUDINE
     Dosage: TOTAL DAILY DOSE: 2 (UNIT NOT PROVIDED), TOTAL DAILY DOSE: 500 (UNIT NOT PROVIDED), COURSE# 1
     Route: 042
     Dates: start: 201501, end: 201501
  6. ZIDOVUDINE. [Suspect]
     Active Substance: ZIDOVUDINE
     Dosage: TOTAL DAILY DOSE: 1 (UNIT NOT PROVIDED), COURSE # 2
     Route: 042
     Dates: start: 201501, end: 201501
  7. EMTRICITABINE (+) TENOFOVIR DISOPROXIL FUMARATE [Suspect]
     Active Substance: EMTRICITABINE\TENOFOVIR DISOPROXIL
     Dosage: TOTAL DAILY DOSE: 500 (UNIT NOT PROVIDED), COURSE# 1
     Route: 048
     Dates: start: 201411
  8. NEVIRAPINE. [Suspect]
     Active Substance: NEVIRAPINE
     Dosage: TOTAL DAILY DOSE: 400 (UNIT NOT PROVIDED)TOTAL DAILY DOSE: 500 (UNIT NOT PROVIDED), COURSE# 1
     Route: 048
     Dates: start: 201501

REACTIONS (2)
  - Maternal exposure during pregnancy [Recovered/Resolved]
  - No adverse event [Unknown]
